FAERS Safety Report 9285613 (Version 1)
Quarter: 2013Q2

REPORT INFORMATION
  Report Type: Report from Study
  Country: JP (occurrence: JP)
  Receive Date: 20130513
  Receipt Date: 20130513
  Transmission Date: 20140414
  Serious: Yes (Other)
  Sender: FDA-Public Use
  Company Number: JP-VERTEX PHARMACEUTICALS INC-2013-005883

PATIENT
  Age: 45 Year
  Sex: Male

DRUGS (8)
  1. VX-950 (TELAPREVIR) [Suspect]
     Indication: CHRONIC HEPATITIS C
     Dosage: 2250 MG, QD
     Route: 048
     Dates: start: 20120704, end: 20120926
  2. PEGINTRON [Suspect]
     Indication: CHRONIC HEPATITIS C
     Dosage: 1.5 ?G/KG, QW
     Route: 058
     Dates: start: 20120704, end: 20120711
  3. PEGINTRON [Suspect]
     Dosage: 0.71 ?G/KG, QW
     Route: 058
     Dates: start: 20120718, end: 20121010
  4. PEGINTRON [Suspect]
     Dosage: 0.36 ?G/KG, QW
     Route: 058
     Dates: start: 20121017, end: 20121107
  5. PEGINTRON [Suspect]
     Dosage: 0.43 ?G/KG, QW
     Route: 058
     Dates: start: 20121114, end: 20121205
  6. PEGINTRON [Suspect]
     Dosage: 0.57 ?G/KG, QW
     Route: 058
     Dates: start: 20121212
  7. RIBAVIRIN [Concomitant]
     Dosage: 800 MG, QD
     Route: 048
     Dates: start: 20120704
  8. URSODEOXYCHOLIC ACID [Concomitant]
     Dosage: 400 MG, QD
     Route: 048
     Dates: end: 20120724

REACTIONS (1)
  - Neutrophil count decreased [Recovered/Resolved]
